FAERS Safety Report 8398283-9 (Version None)
Quarter: 2012Q2

REPORT INFORMATION
  Report Type: 
  Country: None (occurrence: None)
  Receive Date: 20120531
  Receipt Date: 20120524
  Transmission Date: 20120825
  Serious: Yes (Death, Life-Threatening, Hospitalization)
  Sender: FDA-Public Use
  Company Number: US-PFIZER INC-2010000567

PATIENT
  Sex: Female
  Weight: 143 kg

DRUGS (24)
  1. ACIPHEX [Concomitant]
     Indication: GASTROOESOPHAGEAL REFLUX DISEASE
     Dosage: 2 MG, 1X/DAY
     Route: 048
     Dates: start: 20070418
  2. ALBUTEROL [Concomitant]
     Indication: CHRONIC OBSTRUCTIVE PULMONARY DISEASE
     Dosage: UNK
     Route: 055
     Dates: start: 20041027
  3. ALBUTEROL [Concomitant]
     Indication: ASTHMA
  4. SYMBICORT [Concomitant]
     Indication: ASTHMA
  5. MORPHINE SULFATE [Suspect]
     Indication: PAIN
     Dosage: UNK
     Route: 042
     Dates: start: 20100105
  6. CYMBALTA [Concomitant]
     Indication: DEPRESSION
     Dosage: 100 MG, DAILY
     Route: 048
     Dates: start: 20081211
  7. FOLIC ACID [Concomitant]
     Dosage: 1 MG, 1X/DAY
     Route: 048
     Dates: start: 20091023
  8. MILK OF MAGNESIA TAB [Concomitant]
     Indication: CONSTIPATION
     Dosage: UNK
     Route: 048
     Dates: start: 20091004
  9. DALTEPARIN SODIUM [Suspect]
     Indication: PULMONARY EMBOLISM
     Dosage: 18000 IU, 1X/DAY
     Route: 058
     Dates: start: 20091022
  10. FUROSEMIDE [Concomitant]
     Indication: HYPERKALAEMIA
  11. SALINEX NASAL MIST [Concomitant]
     Indication: NASAL DISCOMFORT
     Dosage: UNK
     Route: 045
     Dates: start: 20070803
  12. POTASSIUM [Concomitant]
     Indication: SUPPLEMENTATION THERAPY
     Dosage: 20 MEQ, 1X/DAY
     Route: 048
     Dates: start: 20061222
  13. FUROSEMIDE [Concomitant]
     Indication: OEDEMA
     Dosage: 40 MG, AS NEEDED
     Route: 048
     Dates: start: 20061128
  14. MONTELUKAST [Concomitant]
     Indication: CHRONIC OBSTRUCTIVE PULMONARY DISEASE
     Dosage: 10 MG, DAILY
     Route: 048
     Dates: start: 20081201
  15. DALTEPARIN SODIUM [Suspect]
     Indication: DEEP VEIN THROMBOSIS
  16. MULTI-VITAMINS [Concomitant]
     Indication: SUPPLEMENTATION THERAPY
     Dosage: 1 DF, 1X/DAY
     Route: 048
     Dates: start: 20061128
  17. SPIRIVA [Concomitant]
     Indication: ASTHMA
     Dosage: 1 DF, 1X/DAY
     Route: 055
     Dates: start: 20061128
  18. LACTULOSE [Concomitant]
     Indication: CONSTIPATION
     Dosage: UNK
     Route: 048
     Dates: start: 20091004
  19. MONTELUKAST [Concomitant]
     Indication: ASTHMA
  20. SYMBICORT [Concomitant]
     Indication: CHRONIC OBSTRUCTIVE PULMONARY DISEASE
     Dosage: UNK
     Route: 055
     Dates: start: 20081211
  21. SPIRIVA [Concomitant]
     Indication: CHRONIC OBSTRUCTIVE PULMONARY DISEASE
  22. DIFLUCAN [Concomitant]
     Indication: CANDIDIASIS
     Dosage: 60 MG, AS NEEDED
     Route: 048
     Dates: start: 20091023
  23. GABAPENTIN [Concomitant]
     Indication: PAIN
     Dosage: 600 MG, 2X/DAY
     Route: 048
     Dates: start: 20061128
  24. CLONAZEPAM [Concomitant]
     Indication: ANXIETY
     Dosage: 0.5 MG, AS NEEDED
     Route: 048

REACTIONS (7)
  - DISEASE PROGRESSION [None]
  - ACUTE RESPIRATORY FAILURE [None]
  - STUPOR [None]
  - HYPOXIA [None]
  - PNEUMONIA [None]
  - HYPERCALCAEMIA [None]
  - BRONCHIOLOALVEOLAR CARCINOMA [None]
